FAERS Safety Report 4391213-6 (Version None)
Quarter: 2004Q2

REPORT INFORMATION
  Report Type: 
  Country: None (occurrence: None)
  Receive Date: 20040621
  Receipt Date: 20040319
  Transmission Date: 20050107
  Serious: Yes (Other)
  Sender: FDA-Public Use
  Company Number: USA-2002-0000666

PATIENT
  Age: 29 Year
  Sex: Male
  Weight: 145.1 kg

DRUGS (10)
  1. OXYCONTIN [Suspect]
     Indication: PAIN
     Dosage: 40 MG, TID, ORAL
     Route: 048
  2. MARIJUANA [Concomitant]
  3. SOMA [Concomitant]
  4. XANAX [Concomitant]
  5. PREVACID [Concomitant]
  6. LOPRESSOR [Concomitant]
  7. LODINE [Concomitant]
  8. ROXICODONE [Concomitant]
  9. VALIUM [Concomitant]
  10. AMBIEN [Concomitant]

REACTIONS (4)
  - DRUG ABUSER [None]
  - DRUG DEPENDENCE [None]
  - DRUG INEFFECTIVE [None]
  - DRUG WITHDRAWAL SYNDROME [None]
